FAERS Safety Report 4364974-X (Version None)
Quarter: 2004Q2

REPORT INFORMATION
  Report Type: 
  Country: None (occurrence: None)
  Receive Date: 20040521
  Receipt Date: 20040511
  Transmission Date: 20050107
  Serious: Yes (Hospitalization)
  Sender: FDA-Public Use
  Company Number: JP-JNJFOC-20040500260

PATIENT
  Age: 56 Year
  Sex: Female
  Weight: 53 kg

DRUGS (15)
  1. REMICADE [Suspect]
     Indication: RHEUMATOID ARTHRITIS
     Dosage: 3 MG/KG, 1 IN 1 AS NECESSARY, INTRAVENOUS DRIP
     Route: 041
     Dates: start: 20040115, end: 20040115
  2. REMICADE [Suspect]
     Indication: RHEUMATOID ARTHRITIS
     Dosage: 3 MG/KG, 1 IN 1 AS NECESSARY, INTRAVENOUS DRIP
     Route: 041
     Dates: start: 20040209, end: 20040209
  3. REMICADE [Suspect]
     Indication: RHEUMATOID ARTHRITIS
     Dosage: 3 MG/KG, 1 IN 1 AS NECESSARY, INTRAVENOUS DRIP
     Route: 041
     Dates: start: 20040308, end: 20040308
  4. RHEUMATREX [Suspect]
     Indication: RHEUMATOID ARTHRITIS
     Dosage: 10.5 MG, IN 1 WEEK,; 6 MG, IN 1 WEEK,
     Dates: start: 20011201, end: 20040112
  5. RHEUMATREX [Suspect]
     Indication: RHEUMATOID ARTHRITIS
     Dosage: 10.5 MG, IN 1 WEEK,; 6 MG, IN 1 WEEK,
     Dates: start: 20040113, end: 20040417
  6. PREDNISOLONE [Suspect]
     Indication: RHEUMATOID ARTHRITIS
     Dosage: 7.5 MG, IN 1 DAY,; 5 MG, IN 1 DAY,
     Dates: end: 20040403
  7. PREDNISOLONE [Suspect]
     Indication: RHEUMATOID ARTHRITIS
     Dosage: 7.5 MG, IN 1 DAY,; 5 MG, IN 1 DAY,
     Dates: start: 20040404, end: 20040418
  8. PREDNISOLONE [Suspect]
     Indication: RHEUMATOID ARTHRITIS
     Dosage: 7.5 MG, IN 1 DAY,; 5 MG, IN 1 DAY,
     Dates: start: 20040426
  9. INH (ISONIAZID) UNKNOWN [Concomitant]
  10. WATER SOLUBLE PREDNISOLONE (PREDNISOLONE) UNKNOWN [Concomitant]
  11. AZULFIDINE [Concomitant]
  12. INDOMETHACIN [Concomitant]
  13. FOLIAMIN (FOLIC ACID) UNKNOWN [Concomitant]
  14. TAKEPRON (LANSOPRAZOLE) UNKNOWN [Concomitant]
  15. MUCOSTA (REBAMIPIDE) UNKNOWN [Concomitant]

REACTIONS (11)
  - BLOOD ALKALINE PHOSPHATASE INCREASED [None]
  - DRUG INEFFECTIVE [None]
  - DYSPNOEA [None]
  - EMPHYSEMA [None]
  - GAMMA-GLUTAMYLTRANSFERASE INCREASED [None]
  - IMMUNE SYSTEM DISORDER [None]
  - LOBAR PNEUMONIA [None]
  - PLEURAL EFFUSION [None]
  - PNEUMONIA [None]
  - PYOTHORAX [None]
  - STREPTOCOCCAL INFECTION [None]
